FAERS Safety Report 4690538-4 (Version None)
Quarter: 2005Q2

REPORT INFORMATION
  Report Type: 
  Country: None (occurrence: None)
  Receive Date: 20050615
  Receipt Date: 20031009
  Transmission Date: 20051028
  Serious: Yes (Hospitalization, Disabling)
  Sender: FDA-Public Use
  Company Number: US-MERCK-0310USA01299

PATIENT
  Age: 57 Year
  Sex: Male
  Weight: 84 kg

DRUGS (9)
  1. VIOXX [Suspect]
     Indication: OSTEOARTHRITIS
     Route: 048
     Dates: start: 19990101, end: 20020301
  2. VIOXX [Suspect]
     Route: 048
     Dates: start: 20011115
  3. VIOXX [Suspect]
     Route: 048
     Dates: start: 20021016
  4. VIOXX [Suspect]
     Indication: RHEUMATOID ARTHRITIS
     Route: 048
     Dates: start: 19990101, end: 20020301
  5. VIOXX [Suspect]
     Route: 048
     Dates: start: 20011115
  6. VIOXX [Suspect]
     Route: 048
     Dates: start: 20021016
  7. ACETAMINOPHEN AND OXYCODONE HYDROCHLORIDE [Concomitant]
     Route: 065
     Dates: start: 20000101
  8. AVAPRO [Concomitant]
     Route: 065
  9. PROTONIX [Concomitant]
     Route: 065

REACTIONS (33)
  - ADVERSE EVENT [None]
  - ANXIETY [None]
  - ARTERIAL RESTENOSIS [None]
  - BARRETT'S OESOPHAGUS [None]
  - BLOOD CHOLESTEROL INCREASED [None]
  - BRADYCARDIA [None]
  - CARPAL TUNNEL SYNDROME [None]
  - COAGULOPATHY [None]
  - CORONARY ARTERY DISEASE [None]
  - CORONARY ARTERY RESTENOSIS [None]
  - DEPRESSION [None]
  - DILATATION ATRIAL [None]
  - DIZZINESS [None]
  - EMOTIONAL DISTRESS [None]
  - GASTRIC DISORDER [None]
  - GASTRIC ULCER [None]
  - HAEMATOCRIT DECREASED [None]
  - HEART RATE IRREGULAR [None]
  - HYPOTENSION [None]
  - INTERNATIONAL NORMALISED RATIO INCREASED [None]
  - MITRAL VALVE INCOMPETENCE [None]
  - MYOCARDIAL INFARCTION [None]
  - PAIN [None]
  - PALPITATIONS [None]
  - PROSTATIC DISORDER [None]
  - PULMONARY VALVE INCOMPETENCE [None]
  - THROMBOSIS [None]
  - TONGUE BITING [None]
  - TONGUE HAEMORRHAGE [None]
  - TRICUSPID VALVE INCOMPETENCE [None]
  - VENTRICULAR DYSFUNCTION [None]
  - VENTRICULAR FIBRILLATION [None]
  - VENTRICULAR TACHYCARDIA [None]
